FAERS Safety Report 8807829 (Version 4)
Quarter: 2012Q4

REPORT INFORMATION
  Report Type: 
  Country: US (occurrence: US)
  Receive Date: 20120925
  Receipt Date: 20121213
  Transmission Date: 20130627
  Serious: Yes (Disabling, Other)
  Sender: FDA-Public Use
  Company Number: US-GLAXOSMITHKLINE-A0994017A

PATIENT
  Age: 29 Year
  Sex: Female
  Weight: 47.7 kg

DRUGS (3)
  1. POTIGA [Suspect]
     Indication: CONVULSION
     Route: 048
     Dates: start: 20120710
  2. VALIUM [Concomitant]
  3. MIDAZOLAM [Concomitant]

REACTIONS (10)
  - Seizure cluster [Recovering/Resolving]
  - Nephrolithiasis [Not Recovered/Not Resolved]
  - Urinary retention [Recovering/Resolving]
  - Chromaturia [Recovering/Resolving]
  - Thirst [Recovering/Resolving]
  - Hunger [Recovering/Resolving]
  - Urine abnormality [Recovering/Resolving]
  - Urinary hesitation [Recovering/Resolving]
  - Bladder dilatation [Recovering/Resolving]
  - Bladder catheterisation [Not Recovered/Not Resolved]
